FAERS Safety Report 8748424 (Version 3)
Quarter: 2013Q2

REPORT INFORMATION
  Report Type: Spontaneous
  Country: IT (occurrence: IT)
  Receive Date: 20120827
  Receipt Date: 20130522
  Transmission Date: 20140414
  Serious: Yes (Other)
  Sender: FDA-Public Use
  Company Number: IT-MYLANLABS-2012S1017083

PATIENT
  Age: 48 Year
  Sex: Female

DRUGS (5)
  1. OLANZAPINE [Suspect]
     Dosage: UP TO 10 MG/DAY
     Route: 065
     Dates: start: 2008
  2. HALOPERIDOL [Suspect]
     Dosage: 2MG
     Route: 030
     Dates: start: 200812
  3. CHLORPROMAZINE [Suspect]
     Dosage: 50MG
     Route: 030
     Dates: start: 200812
  4. CLOZAPINE [Suspect]
     Dosage: 25 MG/DAY
     Route: 065
  5. DOXAZOSIN [Concomitant]
     Indication: HYPERTENSION
     Route: 065

REACTIONS (2)
  - Neuroleptic malignant syndrome [Recovered/Resolved]
  - Catatonia [Recovered/Resolved]
